FAERS Safety Report 21599750 (Version 3)
Quarter: 2023Q1

REPORT INFORMATION
  Report Type: Spontaneous
  Country: PT (occurrence: PT)
  Receive Date: 20221115
  Receipt Date: 20230210
  Transmission Date: 20230418
  Serious: Yes (Hospitalization, Disabling, Other)
  Sender: FDA-Public Use
  Company Number: PT-Zentiva-2022-ZT-010847

PATIENT
  Age: 71 Year
  Sex: Male

DRUGS (1)
  1. METFORMIN [Suspect]
     Active Substance: METFORMIN HYDROCHLORIDE
     Indication: Type 2 diabetes mellitus
     Dosage: UNK
     Route: 065

REACTIONS (12)
  - Altered state of consciousness [Recovering/Resolving]
  - Neuropathy vitamin B12 deficiency [Recovering/Resolving]
  - Quadriparesis [Not Recovered/Not Resolved]
  - Vitamin B12 decreased [Recovering/Resolving]
  - Gait disturbance [Recovering/Resolving]
  - Anaemia macrocytic [Recovering/Resolving]
  - Vitamin B12 deficiency [Unknown]
  - Depressed level of consciousness [Unknown]
  - Disorientation [Recovering/Resolving]
  - C-reactive protein increased [Recovering/Resolving]
  - Cognitive disorder [Not Recovered/Not Resolved]
  - Muscular weakness [Recovering/Resolving]
